FAERS Safety Report 16305329 (Version 3)
Quarter: 2019Q3

REPORT INFORMATION
  Report Type: Spontaneous
  Country: AU (occurrence: AU)
  Receive Date: 20190513
  Receipt Date: 20190724
  Transmission Date: 20191004
  Serious: Yes (Hospitalization, Other)
  Sender: FDA-Public Use
  Company Number: AU-BRISTOL-MYERS SQUIBB COMPANY-BMS-2019-043849

PATIENT
  Age: 56 Year
  Sex: Female

DRUGS (2)
  1. IPILIMUMAB [Suspect]
     Active Substance: IPILIMUMAB
     Indication: CHOROID MELANOMA
     Dosage: 3 MILLIGRAM/KILOGRAM
     Route: 065
     Dates: start: 20181008, end: 20181029
  2. NIVOLUMAB [Suspect]
     Active Substance: NIVOLUMAB
     Indication: CHOROID MELANOMA
     Dosage: 1 MILLIGRAM/KILOGRAM
     Route: 065
     Dates: start: 20181008, end: 20181029

REACTIONS (9)
  - Diabetes mellitus [Unknown]
  - Colitis [Recovered/Resolved]
  - Bursitis [Unknown]
  - Hepatitis [Unknown]
  - Acute kidney injury [Unknown]
  - Hyperthyroidism [Unknown]
  - Headache [Unknown]
  - Myopathy [Unknown]
  - Cushingoid [Unknown]

NARRATIVE: CASE EVENT DATE: 20181113
